FAERS Safety Report 19865239 (Version 1)
Quarter: 2021Q3

REPORT INFORMATION
  Report Type: Spontaneous
  Country: US (occurrence: US)
  Receive Date: 20210921
  Receipt Date: 20210921
  Transmission Date: 20211014
  Serious: Yes (Death)
  Sender: FDA-Public Use
  Company Number: None

PATIENT
  Age: 65 Year
  Sex: Male
  Weight: 54 kg

DRUGS (4)
  1. GABAPENTIN 100 MG [Suspect]
     Active Substance: GABAPENTIN
     Indication: ARTHRALGIA
     Dates: start: 20210524, end: 20210528
  2. CHOLESTEROL MEDICATION [Concomitant]
     Active Substance: UNSPECIFIED INGREDIENT
  3. HYDROCODONE?ACETAMINOPHEN [Concomitant]
     Active Substance: ACETAMINOPHEN\HYDROCODONE
  4. GABAPENTIN 100 MG [Suspect]
     Active Substance: GABAPENTIN
     Indication: BIPOLAR DISORDER
     Dates: start: 20210524, end: 20210528

REACTIONS (3)
  - Nervousness [None]
  - Agitation [None]
  - Completed suicide [None]

NARRATIVE: CASE EVENT DATE: 20210524
